FAERS Safety Report 9120937 (Version 1)
Quarter: 2013Q1

REPORT INFORMATION
  Report Type: Spontaneous
  Country: JP (occurrence: JP)
  Receive Date: 20130226
  Receipt Date: 20130226
  Transmission Date: 20140127
  Serious: Yes (Other)
  Sender: FDA-Public Use
  Company Number: JP-GLAXOSMITHKLINE-B0869857A

PATIENT
  Sex: Female

DRUGS (3)
  1. REQUIP [Suspect]
     Indication: PARKINSON^S DISEASE
     Dosage: 8MG PER DAY
     Route: 048
     Dates: start: 20130205, end: 20130219
  2. MENESIT [Concomitant]
     Route: 048
  3. FP [Concomitant]
     Route: 048

REACTIONS (2)
  - Pneumonia [Unknown]
  - Dysphagia [Unknown]
